APPROVED DRUG PRODUCT: HEPARIN LOCK FLUSH
Active Ingredient: HEPARIN SODIUM
Strength: 500 UNITS/ML
Dosage Form/Route: INJECTABLE;INJECTION
Application: A086357 | Product #002
Applicant: INTERNATIONAL MEDICATION SYSTEMS LTD
Approved: Approved Prior to Jan 1, 1982 | RLD: No | RS: No | Type: DISCN